FAERS Safety Report 9095637 (Version 4)
Quarter: 2013Q2

REPORT INFORMATION
  Report Type: Spontaneous
  Country: US (occurrence: None)
  Receive Date: 20130122
  Receipt Date: 20130606
  Transmission Date: 20140414
  Serious: Yes (Hospitalization, Other)
  Sender: FDA-Public Use
  Company Number: ADR-2013-00081

PATIENT
  Age: 50 Year
  Sex: Female

DRUGS (6)
  1. BACLOFEN [Suspect]
     Indication: CANCER PAIN
     Route: 037
  2. BUPIVACAINE [Concomitant]
  3. CLONIDINE [Concomitant]
  4. DROPERIDOL [Concomitant]
  5. DILAUDID [Concomitant]
  6. MORPHINE [Concomitant]

REACTIONS (2)
  - Inflammation [None]
  - Mass [None]
